FAERS Safety Report 6154117-4 (Version None)
Quarter: 2009Q2

REPORT INFORMATION
  Report Type: 
  Country: None (occurrence: None)
  Receive Date: 20090414
  Receipt Date: 20090331
  Transmission Date: 20091009
  Serious: Yes (Life-Threatening, Other)
  Sender: FDA-Public Use
  Company Number: US-BAYER-200917718GPV

PATIENT
  Age: 62 Year
  Sex: Female

DRUGS (1)
  1. ASPIRIN [Suspect]
     Indication: DRUG USE FOR UNKNOWN INDICATION
     Dosage: TOTAL DAILY DOSE: 325 MG

REACTIONS (3)
  - OBSTRUCTIVE AIRWAYS DISORDER [None]
  - THROMBOCYTOPENIA [None]
  - THYROID HAEMORRHAGE [None]
